FAERS Safety Report 24957630 (Version 1)
Quarter: 2025Q1

REPORT INFORMATION
  Report Type: Spontaneous
  Country: JP (occurrence: JP)
  Receive Date: 20250212
  Receipt Date: 20250212
  Transmission Date: 20250408
  Serious: Yes (Hospitalization)
  Sender: AMGEN
  Company Number: JP-DSJP-DS-2025-123589-

PATIENT
  Age: 89 Year
  Sex: Female

DRUGS (1)
  1. DENOSUMAB [Suspect]
     Active Substance: DENOSUMAB
     Indication: Osteoporosis
     Route: 065
     Dates: start: 20240806

REACTIONS (3)
  - Fall [Recovering/Resolving]
  - Compression fracture [Recovering/Resolving]
  - Nosocomial infection [Recovering/Resolving]

NARRATIVE: CASE EVENT DATE: 20240101
